FAERS Safety Report 5630977-8 (Version None)
Quarter: 2008Q1

REPORT INFORMATION
  Report Type: 
  Country: None (occurrence: None)
  Receive Date: 20080219
  Receipt Date: 20080206
  Transmission Date: 20080703
  Serious: Yes (Other)
  Sender: FDA-Public Use
  Company Number: CA-ELI_LILLY_AND_COMPANY-CA200801004864

PATIENT
  Age: 84 Year
  Sex: Female

DRUGS (13)
  1. FORTEO [Suspect]
     Indication: OSTEOPOROSIS
     Dosage: 20 UG, DAILY (1/D)
     Route: 058
     Dates: start: 20071025
  2. MIACALCIN [Concomitant]
  3. COVERSYL [Concomitant]
     Dosage: 8 MG, DAILY (1/D)
     Route: 048
  4. LIPITOR [Concomitant]
     Indication: BLOOD CHOLESTEROL
     Dosage: 5 MG, DAILY (1/D)
     Route: 048
  5. NOVO-SEMIDE [Concomitant]
     Indication: FLUID RETENTION
     Dosage: 20 MG, EACH MORNING
     Route: 048
  6. ELTROXIN [Concomitant]
     Dosage: 0.1 MG, DAILY (1/D)
     Route: 048
  7. CALCIUM [Concomitant]
  8. VITAMIN D [Concomitant]
     Dosage: 400 U, 2/D
     Route: 048
  9. VITAMIN B-12 [Concomitant]
     Dosage: 1200 UG, OTHER
  10. RATIO-DILTIAZEM CD [Concomitant]
     Dosage: 240 MG, DAILY (1/D)
     Route: 048
  11. RABEPRAZOLE SODIUM [Concomitant]
     Dosage: 20 MG, DAILY (1/D)
     Route: 048
  12. EXELON [Concomitant]
     Dosage: 1.5 MG, 2/D
     Route: 048
  13. TRAZODONE HCL [Concomitant]
     Dosage: 50 MG, EACH EVENING
     Route: 048

REACTIONS (1)
  - ANGINA UNSTABLE [None]
